FAERS Safety Report 8839410 (Version 1)
Quarter: 2012Q4

REPORT INFORMATION
  Report Type: Spontaneous
  Country: US (occurrence: None)
  Receive Date: 20121012
  Receipt Date: 20121012
  Transmission Date: 20130627
  Serious: Yes (Disabling, Other)
  Sender: FDA-Public Use
  Company Number: None

PATIENT
  Sex: Male
  Weight: 96.16 kg

DRUGS (1)
  1. HYGROTON [Suspect]
     Indication: BLOOD PRESSURE
     Route: 048
     Dates: start: 20120411, end: 20120610

REACTIONS (5)
  - Gait disturbance [None]
  - Muscular weakness [None]
  - Blood potassium decreased [None]
  - Blood sodium decreased [None]
  - Pain [None]
